FAERS Safety Report 18541630 (Version 28)
Quarter: 2025Q4

REPORT INFORMATION
  Report Type: Report from Study
  Country: US (occurrence: US)
  Receive Date: 20201124
  Receipt Date: 20251202
  Transmission Date: 20260118
  Serious: Yes (Hospitalization, Other)
  Sender: TAKEDA
  Company Number: US-TAKEDA-2020TUS047329

PATIENT
  Age: 76 Year
  Sex: Male

DRUGS (8)
  1. HUMAN IMMUNOGLOBULIN G [Suspect]
     Active Substance: HUMAN IMMUNOGLOBULIN G
     Indication: Primary immunodeficiency syndrome
     Dosage: 10 GRAM, 1/WEEK
  2. HUMAN IMMUNOGLOBULIN G [Suspect]
     Active Substance: HUMAN IMMUNOGLOBULIN G
     Indication: Immunodeficiency common variable
     Dosage: UNK
  3. HYQVIA [Suspect]
     Active Substance: HUMAN IMMUNOGLOBULIN G\HYALURONIDASE (HUMAN RECOMBINANT)
     Indication: Immunodeficiency common variable
     Dosage: UNK
  4. HYQVIA [Suspect]
     Active Substance: HUMAN IMMUNOGLOBULIN G\HYALURONIDASE (HUMAN RECOMBINANT)
     Indication: Primary immunodeficiency syndrome
     Dosage: 50 GRAM
  5. HYQVIA [Suspect]
     Active Substance: HUMAN IMMUNOGLOBULIN G\HYALURONIDASE (HUMAN RECOMBINANT)
     Dosage: UNK
  6. COVID-19 VACCINE NOS [Suspect]
     Active Substance: COVID-19 VACCINE
     Indication: Product used for unknown indication
     Dosage: UNK
  7. INTERFERON [Suspect]
     Active Substance: INTERFERON
     Indication: Chronic granulomatous disease
     Dosage: UNK
  8. BACTRIM [Concomitant]
     Active Substance: SULFAMETHOXAZOLE\TRIMETHOPRIM
     Indication: Chronic granulomatous disease
     Dosage: UNK UNK, QD

REACTIONS (55)
  - Basal cell carcinoma [Unknown]
  - Addison^s disease [Unknown]
  - Gastrointestinal melanoma [Unknown]
  - Atrial fibrillation [Unknown]
  - Pleurisy [Unknown]
  - Dyspnoea [Unknown]
  - Heart rate increased [Unknown]
  - Red blood cell count decreased [Unknown]
  - Pancreatitis [Recovering/Resolving]
  - Pneumonia [Unknown]
  - Cardiac disorder [Unknown]
  - Peripheral swelling [Unknown]
  - Hepatic cyst [Unknown]
  - Gastrointestinal disorder [Unknown]
  - Pancreatic cyst [Unknown]
  - Feeding disorder [Unknown]
  - Weight decreased [Unknown]
  - Joint injury [Unknown]
  - Chronic granulomatous disease [Recovering/Resolving]
  - Sunburn [Unknown]
  - Pancreatic neoplasm [Not Recovered/Not Resolved]
  - Joint effusion [Unknown]
  - Musculoskeletal discomfort [Unknown]
  - Neck pain [Unknown]
  - Limb injury [Unknown]
  - Urinary tract infection [Recovering/Resolving]
  - Discomfort [Unknown]
  - Dysstasia [Recovering/Resolving]
  - Gait inability [Recovering/Resolving]
  - Quality of life decreased [Recovering/Resolving]
  - Poor quality sleep [Unknown]
  - Infusion site discharge [Recovered/Resolved]
  - Inappropriate schedule of product administration [Unknown]
  - Oropharyngeal discomfort [Unknown]
  - Immunoglobulins increased [Unknown]
  - Respiratory tract congestion [Unknown]
  - Haemorrhoids [Unknown]
  - Concussion [Unknown]
  - Influenza [Unknown]
  - Injection site mass [Unknown]
  - Insomnia [Unknown]
  - Asthenia [Recovering/Resolving]
  - Cough [Unknown]
  - Influenza like illness [Not Recovered/Not Resolved]
  - Pain in extremity [Unknown]
  - Malaise [Unknown]
  - Lethargy [Unknown]
  - Rash [Unknown]
  - Pain [Unknown]
  - Oedema peripheral [Unknown]
  - Pyrexia [Unknown]
  - Dizziness [Unknown]
  - Headache [Recovered/Resolved]
  - Diarrhoea [Unknown]
  - Fatigue [Recovering/Resolving]

NARRATIVE: CASE EVENT DATE: 20201030
